FAERS Safety Report 20654107 (Version 1)
Quarter: 2022Q1

REPORT INFORMATION
  Report Type: Spontaneous
  Country: US (occurrence: US)
  Receive Date: 20220330
  Receipt Date: 20220330
  Transmission Date: 20220423
  Serious: No
  Sender: FDA-Public Use
  Company Number: US-BAUSCH-BL-2022-007931

PATIENT
  Sex: Female
  Weight: 51.302 kg

DRUGS (1)
  1. OPCON-A [Suspect]
     Active Substance: NAPHAZOLINE HYDROCHLORIDE\PHENIRAMINE MALEATE
     Indication: Ocular discomfort
     Dosage: AS NEEDED
     Route: 047
     Dates: end: 20220318

REACTIONS (1)
  - Instillation site pain [Recovered/Resolved]
